FAERS Safety Report 9881278 (Version 1)
Quarter: 2014Q1

REPORT INFORMATION
  Report Type: Spontaneous
  Country: JP (occurrence: JP)
  Receive Date: 20140207
  Receipt Date: 20140207
  Transmission Date: 20141002
  Serious: Yes (Life-Threatening)
  Sender: FDA-Public Use
  Company Number: JP-ASTRAZENECA-2014SE07960

PATIENT
  Age: 84 Year
  Sex: Female
  Weight: 40 kg

DRUGS (2)
  1. PROPOFOL [Suspect]
     Indication: INDUCTION OF ANAESTHESIA
     Route: 040
  2. REMIFENTANIL [Concomitant]
     Indication: INDUCTION OF ANAESTHESIA
     Dosage: 0.2 UK/KG/MIN
     Route: 042

REACTIONS (4)
  - Electrocardiogram ST segment [Recovered/Resolved]
  - Ventricular fibrillation [Recovered/Resolved]
  - Myocardial ischaemia [Recovered/Resolved]
  - Hypotension [Recovered/Resolved]
